FAERS Safety Report 4685280-X (Version None)
Quarter: 2005Q2

REPORT INFORMATION
  Report Type: 
  Country: None (occurrence: None)
  Receive Date: 20050608
  Receipt Date: 20050602
  Transmission Date: 20051028
  Serious: Yes (Other)
  Sender: FDA-Public Use
  Company Number: US-JNJFOC-20050601021

PATIENT
  Sex: Female
  Weight: 99.79 kg

DRUGS (9)
  1. DITROPAN XL [Suspect]
     Route: 049
  2. DITROPAN XL [Suspect]
     Dosage: FOR 6 MONTHS, TOOK MEDICATION ONLY ON DAYS WHEN SHE WENT OUTSIDE.
     Route: 049
  3. AMARIL [Concomitant]
  4. AVANDIA [Concomitant]
  5. GLUCOPHAGE [Concomitant]
  6. TOPROL-XL [Concomitant]
  7. NEURONTIN [Concomitant]
  8. ALTACE [Concomitant]
  9. SUPPLEMENTS [Concomitant]

REACTIONS (5)
  - BLOOD URINE PRESENT [None]
  - CONSTIPATION [None]
  - DRY MOUTH [None]
  - HAEMOGLOBIN DECREASED [None]
  - THERAPEUTIC RESPONSE DECREASED [None]
